FAERS Safety Report 5202731-2 (Version None)
Quarter: 2006Q4

REPORT INFORMATION
  Report Type: 
  Country: None (occurrence: None)
  Receive Date: 20061018
  Receipt Date: 20060202
  Transmission Date: 20070319
  Serious: Yes (Other)
  Sender: FDA-Public Use
  Company Number: PHEH2005US06276

PATIENT
  Age: 61 Year
  Sex: Female

DRUGS (1)
  1. ZOMETA [Suspect]
     Indication: METASTASES TO BONE
     Dosage: 4 MG EVERY MONTH, INFUSION
     Dates: start: 20030827, end: 20050921

REACTIONS (3)
  - BONE SCAN ABNORMAL [None]
  - MALIGNANT NEOPLASM PROGRESSION [None]
  - PERIODONTAL DISEASE [None]
